FAERS Safety Report 5842352-1 (Version None)
Quarter: 2008Q3

REPORT INFORMATION
  Report Type: 
  Country: None (occurrence: None)
  Receive Date: 20080731
  Receipt Date: 20080429
  Transmission Date: 20090109
  Serious: No
  Sender: FDA-Public Use
  Company Number: US200802006712

PATIENT
  Age: 62 Year
  Sex: Female

DRUGS (15)
  1. BYETTA [Suspect]
     Indication: TYPE 2 DIABETES MELLITUS
     Dosage: 5 UG; 10 UG, 2/D
     Dates: start: 20080101, end: 20080201
  2. BYETTA [Suspect]
     Indication: TYPE 2 DIABETES MELLITUS
     Dosage: 5 UG; 10 UG, 2/D
     Dates: start: 20071201, end: 20080220
  3. BYETTA [Suspect]
     Dates: start: 20080101
  4. EXENATIDE 10MCG PEN, DISPOSABLE DEVICE (EXENATIDE PEN (10MCG)) PEN,DIS [Concomitant]
  5. EXENATIDE UNK STRENGTH PEN, DISPOSABLE DEVICE (EXENATIDE PEN (UNKNOWN [Concomitant]
  6. AMARYL [Concomitant]
  7. ACTOS /USA/ (PIOGLITAZONE HYDROCHLORIDE) [Concomitant]
  8. DIOVAN (HYDROCHLOROTHIAZIDE, VALSARTAN) [Concomitant]
  9. HYDROCHLOROTHIAZIDE [Concomitant]
  10. FUROSEMIDE (FUROSEMIDE) [Concomitant]
  11. L-THYROXINE (LEVOTHYROXINE) [Concomitant]
  12. OMEGA-3 FISH OIL (FISH OIL) CAPSULE [Concomitant]
  13. ASPIRIN [Concomitant]
  14. PRANDIN /USA/ (REPAGLINIDE) [Concomitant]
  15. LANTUS [Concomitant]

REACTIONS (2)
  - GLYCOSYLATED HAEMOGLOBIN INCREASED [None]
  - PAROTID GLAND ENLARGEMENT [None]
